FAERS Safety Report 22304076 (Version 2)
Quarter: 2023Q2

REPORT INFORMATION
  Report Type: Spontaneous
  Country: CN (occurrence: CN)
  Receive Date: 20230510
  Receipt Date: 20230515
  Transmission Date: 20230721
  Serious: Yes (Hospitalization, Other)
  Sender: FDA-Public Use
  Company Number: CN-PFIZER INC-PV202300081713

PATIENT
  Age: 22 Year
  Sex: Female
  Weight: 79 kg

DRUGS (2)
  1. METHOTREXATE SODIUM [Suspect]
     Active Substance: METHOTREXATE SODIUM
     Indication: Acute leukaemia
     Dosage: 2000 MG, 1X/DAY
     Route: 041
     Dates: start: 20230315, end: 20230315
  2. CYTARABINE [Concomitant]
     Active Substance: CYTARABINE
     Indication: Acute leukaemia
     Dosage: 3000 MG, 2X/DAY
     Route: 041
     Dates: start: 20230316, end: 20230317

REACTIONS (2)
  - Haemorrhage [Recovering/Resolving]
  - Myelosuppression [Recovering/Resolving]

NARRATIVE: CASE EVENT DATE: 20230324
